FAERS Safety Report 20792409 (Version 1)
Quarter: 2022Q2

REPORT INFORMATION
  Report Type: Spontaneous
  Country: US (occurrence: US)
  Receive Date: 20220506
  Receipt Date: 20220506
  Transmission Date: 20220721
  Serious: Yes (Other)
  Sender: FDA-Public Use
  Company Number: US-CELLTRION INC.-2022US005735

PATIENT

DRUGS (4)
  1. TRUXIMA [Suspect]
     Active Substance: RITUXIMAB-ABBS
     Indication: Haemolytic anaemia
     Dosage: 592MG WEEKLY TIMES 4 Q6M STARTS D-7
     Dates: start: 20220405
  2. TRUXIMA [Suspect]
     Active Substance: RITUXIMAB-ABBS
     Dosage: 592MG WEEKLY TIMES 4 Q6M STARTS D-7
     Dates: start: 20220412
  3. TRUXIMA [Suspect]
     Active Substance: RITUXIMAB-ABBS
     Dosage: 592MG WEEKLY TIMES 4 Q6M STARTS D-7
     Dates: start: 20220419
  4. TRUXIMA [Suspect]
     Active Substance: RITUXIMAB-ABBS
     Dosage: 592MG WEEKLY TIMES 4 Q6M STARTS D-7
     Dates: start: 20220426

REACTIONS (2)
  - Haemolytic anaemia [Unknown]
  - Off label use [Unknown]
